FAERS Safety Report 8965664 (Version 1)
Quarter: 2012Q4

REPORT INFORMATION
  Report Type: Spontaneous
  Country: US (occurrence: None)
  Receive Date: 20121212
  Receipt Date: 20121212
  Transmission Date: 20130627
  Serious: No
  Sender: FDA-Public Use
  Company Number: None

PATIENT
  Age: 10 Year
  Sex: Male

DRUGS (1)
  1. KUVAN [Suspect]
     Indication: PHENYLKETONURIA
     Dosage: 700 mg Daily  PO
     Route: 048
     Dates: start: 20120927

REACTIONS (2)
  - Attention deficit/hyperactivity disorder [None]
  - Affective disorder [None]
